FAERS Safety Report 16312013 (Version 1)
Quarter: 2019Q2

REPORT INFORMATION
  Report Type: Spontaneous
  Country: GP (occurrence: GP)
  Receive Date: 20190515
  Receipt Date: 20190515
  Transmission Date: 20190711
  Serious: Yes (Other)
  Sender: FDA-Public Use
  Company Number: GP-PROVELL PHARMACEUTICALS-2067005

PATIENT
  Sex: Female

DRUGS (1)
  1. EUTHYROX [Suspect]
     Active Substance: LEVOTHYROXINE SODIUM
     Indication: PRODUCT USED FOR UNKNOWN INDICATION
     Dates: start: 2018

REACTIONS (10)
  - Vertigo [None]
  - Alopecia [None]
  - Decreased appetite [None]
  - Anaemia [None]
  - Tremor [None]
  - Weight decreased [None]
  - Loss of consciousness [None]
  - Hyperthyroidism [None]
  - Paraesthesia [None]
  - Headache [None]

NARRATIVE: CASE EVENT DATE: 201808
